FAERS Safety Report 24393252 (Version 3)
Quarter: 2024Q4

REPORT INFORMATION
  Report Type: Spontaneous
  Country: US (occurrence: US)
  Receive Date: 20241003
  Receipt Date: 20241112
  Transmission Date: 20250114
  Serious: No
  Sender: PFIZER
  Company Number: US-PFIZER INC-202400268962

PATIENT
  Age: 71 Year
  Sex: Female

DRUGS (2)
  1. IBRANCE [Suspect]
     Active Substance: PALBOCICLIB
     Dosage: 100 MG
     Dates: start: 20240805
  2. IBRANCE [Suspect]
     Active Substance: PALBOCICLIB
     Dosage: 100 MG

REACTIONS (5)
  - Pruritus [Not Recovered/Not Resolved]
  - Blister [Unknown]
  - Skin exfoliation [Unknown]
  - Palmar erythema [Unknown]
  - Dry skin [Unknown]

NARRATIVE: CASE EVENT DATE: 20240101
